FAERS Safety Report 22342035 (Version 1)
Quarter: 2023Q2

REPORT INFORMATION
  Report Type: Spontaneous
  Country: CN (occurrence: CN)
  Receive Date: 20230518
  Receipt Date: 20230518
  Transmission Date: 20230722
  Serious: Yes (Hospitalization, Other)
  Sender: FDA-Public Use
  Company Number: None

PATIENT
  Age: 86 Year
  Sex: Male
  Weight: 61 kg

DRUGS (7)
  1. CYCLOPHOSPHAMIDE [Suspect]
     Active Substance: CYCLOPHOSPHAMIDE
     Indication: Non-Hodgkin^s lymphoma
     Dosage: 0.68 G, QD, D1, R-CHOP REGIMEN
     Route: 041
     Dates: start: 20230426, end: 20230426
  2. RITUXIMAB [Suspect]
     Active Substance: RITUXIMAB
     Indication: Non-Hodgkin^s lymphoma
     Dosage: 3 MG, QD, R-CHOP REGIMEN
     Route: 041
     Dates: start: 20230426, end: 20230426
  3. RITUXIMAB [Suspect]
     Active Substance: RITUXIMAB
     Dosage: 660 MG, QD, D2, R-CHOP REGIMEN
     Route: 041
     Dates: start: 20230427, end: 20230428
  4. DOXORUBICIN HYDROCHLORIDE [Suspect]
     Active Substance: DOXORUBICIN HYDROCHLORIDE
     Indication: Non-Hodgkin^s lymphoma
     Dosage: 30 MG, D1, R-CHOP REGIMEN, (SELF-CONTAINED DRUG)
     Route: 065
     Dates: start: 20230426, end: 20230426
  5. VINDESINE [Suspect]
     Active Substance: VINDESINE
     Indication: Non-Hodgkin^s lymphoma
     Dosage: 3 MG, D1,  R-CHOP REGIMEN
     Route: 065
     Dates: start: 20230426, end: 20230426
  6. DEXAMETHASONE [Suspect]
     Active Substance: DEXAMETHASONE
     Indication: Non-Hodgkin^s lymphoma
     Dosage: R-CHOP REGIMEN
     Route: 065
     Dates: start: 20230426
  7. SODIUM CHLORIDE [Suspect]
     Active Substance: SODIUM CHLORIDE
     Indication: Medication dilution
     Dosage: 500 ML QD
     Route: 041
     Dates: start: 20230426, end: 20230426

REACTIONS (3)
  - Myelosuppression [Not Recovered/Not Resolved]
  - Non-Hodgkin^s lymphoma [Unknown]
  - Condition aggravated [Unknown]

NARRATIVE: CASE EVENT DATE: 20230511
